FAERS Safety Report 11095948 (Version 2)
Quarter: 2015Q3

REPORT INFORMATION
  Report Type: Spontaneous
  Country: US (occurrence: US)
  Receive Date: 20150507
  Receipt Date: 20150903
  Transmission Date: 20151125
  Serious: Yes (Other)
  Sender: FDA-Public Use
  Company Number: US-AUROBINDO-AUR-APL-2015-03991

PATIENT
  Sex: Female
  Weight: 95.3 kg

DRUGS (23)
  1. IPRATROPIUM [Concomitant]
     Active Substance: IPRATROPIUM
     Indication: ASTHMA
     Dosage: 5 MG, FOUR TIMES/DAY
     Route: 055
     Dates: start: 2012
  2. LOSARTAN. [Concomitant]
     Active Substance: LOSARTAN
     Dosage: 100 MG, TWO TIMES A DAY
     Route: 048
     Dates: start: 2014
  3. IBUPROFEN. [Concomitant]
     Active Substance: IBUPROFEN
     Dosage: UNK DF, AS NECESSARY
     Route: 048
  4. LORATADINE. [Concomitant]
     Active Substance: LORATADINE
     Indication: MULTIPLE ALLERGIES
     Dosage: 10 MG, ONCE A DAY
     Route: 048
  5. PREDNISONE. [Concomitant]
     Active Substance: PREDNISONE
     Indication: PRODUCT USED FOR UNKNOWN INDICATION
     Dosage: UNK
     Route: 065
     Dates: start: 2013
  6. BENADRYL [Concomitant]
     Active Substance: DIPHENHYDRAMINE HYDROCHLORIDE
     Indication: HYPERSENSITIVITY
     Dosage: 1-2 TABS PRN
     Route: 048
  7. ACETAMINOPHEN. [Concomitant]
     Active Substance: ACETAMINOPHEN
     Indication: BACK DISORDER
     Dosage: UNK, AS NECESSARY
     Route: 065
  8. ATENOLOL 50 MG [Suspect]
     Active Substance: ATENOLOL
     Indication: BLOOD PRESSURE ABNORMAL
     Dosage: 50 MG, DAILY
     Route: 065
     Dates: start: 2014
  9. SYMBICORT [Suspect]
     Active Substance: BUDESONIDE\FORMOTEROL FUMARATE DIHYDRATE
     Indication: ASTHMA
     Dosage: 162/4.5 MCG 2 PUFFS BID
     Route: 055
     Dates: start: 2010, end: 201406
  10. ROBITUSSIN DM [Concomitant]
     Active Substance: DEXTROMETHORPHAN HYDROBROMIDE\GUAIFENESIN
     Indication: PROPHYLAXIS
     Dosage: UNK, AS NECESSARY
     Route: 065
  11. ALBUTEROL                          /00139501/ [Concomitant]
     Active Substance: ALBUTEROL
     Indication: ASTHMA
     Dosage: 0.5 MG, FOUR TIMES/DAY
     Route: 055
  12. SINGULAIR [Concomitant]
     Active Substance: MONTELUKAST SODIUM
     Indication: ASTHMA
     Dosage: 10 MG, 3 TIMES A DAY
     Route: 048
  13. ROBITUSSIN DM [Concomitant]
     Active Substance: DEXTROMETHORPHAN HYDROBROMIDE\GUAIFENESIN
     Indication: COUGH
  14. METOPROLOL [Suspect]
     Active Substance: METOPROLOL
     Indication: PRODUCT USED FOR UNKNOWN INDICATION
     Route: 065
  15. NEXIUM [Suspect]
     Active Substance: ESOMEPRAZOLE MAGNESIUM
     Indication: GASTROOESOPHAGEAL REFLUX DISEASE
     Dosage: 40 MG, DAILY
     Route: 048
     Dates: start: 2004, end: 201406
  16. CYCLOBENZAPRINE [Suspect]
     Active Substance: CYCLOBENZAPRINE
     Indication: MUSCLE RELAXANT THERAPY
     Dosage: 10 MG, AS NECESSARY
     Route: 048
     Dates: start: 201406
  17. LOSARTAN. [Concomitant]
     Active Substance: LOSARTAN
     Indication: BLOOD PRESSURE ABNORMAL
     Dosage: 50 MG, TWO TIMES A DAY
     Route: 048
     Dates: start: 20140615
  18. TYLENOL [Concomitant]
     Active Substance: ACETAMINOPHEN
     Indication: BACK PAIN
     Dosage: 2 DF, AT BED TIME
     Route: 048
  19. BABY ASPIRIN [Concomitant]
     Active Substance: ASPIRIN
     Indication: CHEST DISCOMFORT
     Dosage: 81 MG, ONCE A DAY
     Route: 065
     Dates: start: 201501
  20. IBUPROFEN. [Concomitant]
     Active Substance: IBUPROFEN
     Indication: BACK PAIN
     Dosage: 2 DF, AT BED TIME
     Route: 048
  21. CYCLOBENZAPRINE [Suspect]
     Active Substance: CYCLOBENZAPRINE
     Dosage: 10 MG, AS NECESSARY TWO TIMES A DAY
     Route: 048
     Dates: start: 201406
  22. ALBUTEROL                          /00139501/ [Concomitant]
     Active Substance: ALBUTEROL
     Dosage: UNK UNK, AS NECESSARY
     Route: 055
  23. SINGULAIR [Concomitant]
     Active Substance: MONTELUKAST SODIUM
     Indication: HYPERSENSITIVITY

REACTIONS (17)
  - Chest discomfort [Unknown]
  - Epigastric discomfort [Unknown]
  - Gastroenteritis viral [Unknown]
  - Malaise [Unknown]
  - Weight increased [Unknown]
  - Dyspnoea [Unknown]
  - Abdominal discomfort [Unknown]
  - Asthma [Unknown]
  - Nasopharyngitis [Unknown]
  - Upper respiratory tract infection [Unknown]
  - Impaired work ability [Unknown]
  - Somnolence [Unknown]
  - Cough [Unknown]
  - Rash [Unknown]
  - Condition aggravated [Unknown]
  - Drug dose omission [Unknown]
  - Drug hypersensitivity [Unknown]

NARRATIVE: CASE EVENT DATE: 2012
